APPROVED DRUG PRODUCT: ONSOLIS
Active Ingredient: FENTANYL CITRATE
Strength: EQ 1.2MG BASE
Dosage Form/Route: FILM;BUCCAL
Application: N022266 | Product #005
Applicant: ADALVO LTD
Approved: Jul 16, 2009 | RLD: No | RS: No | Type: DISCN

PATENTS:
Patent 9597288 | Expires: Jul 23, 2027